FAERS Safety Report 24947910 (Version 1)
Quarter: 2025Q1

REPORT INFORMATION
  Report Type: Spontaneous
  Country: LK (occurrence: LK)
  Receive Date: 20250210
  Receipt Date: 20250210
  Transmission Date: 20250409
  Serious: Yes (Death)
  Sender: STRIDES
  Company Number: LK-STRIDES ARCOLAB LIMITED-2025SP001876

PATIENT
  Age: 24 Year
  Sex: Male

DRUGS (3)
  1. HALOPERIDOL [Suspect]
     Active Substance: HALOPERIDOL
     Indication: Antipsychotic therapy
     Route: 065
  2. OLANZAPINE [Suspect]
     Active Substance: OLANZAPINE
     Indication: Antipsychotic therapy
     Route: 065
  3. TRIHEXYPHENIDYL [Suspect]
     Active Substance: TRIHEXYPHENIDYL
     Indication: Antipsychotic therapy
     Route: 065

REACTIONS (6)
  - Pulmonary haemorrhage [Fatal]
  - Renal disorder [Fatal]
  - Pulmonary oedema [Fatal]
  - Renal tubular necrosis [Fatal]
  - Toxicity to various agents [Fatal]
  - Overdose [Fatal]
